FAERS Safety Report 4647627-X (Version None)
Quarter: 2005Q2

REPORT INFORMATION
  Report Type: 
  Country: None (occurrence: None)
  Receive Date: 20050428
  Receipt Date: 20050331
  Transmission Date: 20051028
  Serious: Yes (Hospitalization, Other)
  Sender: FDA-Public Use
  Company Number: PHBS2005JP04683

PATIENT
  Age: 79 Year
  Sex: Male

DRUGS (3)
  1. ATELEC [Concomitant]
     Dosage: UNK, UNK
     Route: 048
  2. HARNAL [Concomitant]
     Dosage: UNK, UNK
     Route: 048
  3. DIOVAN [Suspect]
     Indication: HYPERTENSION
     Dosage: 80 MG, QD
     Route: 048

REACTIONS (6)
  - ALANINE AMINOTRANSFERASE INCREASED [None]
  - ASPARTATE AMINOTRANSFERASE INCREASED [None]
  - BILE DUCT STONE [None]
  - BLOOD BILIRUBIN INCREASED [None]
  - GALLSTONES IN BILE DUCT REMOVAL [None]
  - LIVER FUNCTION TEST ABNORMAL [None]
